FAERS Safety Report 17239338 (Version 1)
Quarter: 2020Q1

REPORT INFORMATION
  Report Type: Spontaneous
  Country: BG (occurrence: BG)
  Receive Date: 20200106
  Receipt Date: 20200106
  Transmission Date: 20200409
  Serious: Yes (Hospitalization, Other)
  Sender: FDA-Public Use
  Company Number: PHHY2019BG211979

PATIENT
  Sex: Male

DRUGS (3)
  1. KVELUX [Suspect]
     Active Substance: QUETIAPINE FUMARATE
     Indication: ANXIETY
     Dosage: 1 DF, TID
     Route: 048
     Dates: start: 201908, end: 20190907
  2. RYTMONORM [Concomitant]
     Active Substance: PROPAFENONE
     Indication: PRODUCT USED FOR UNKNOWN INDICATION
     Dosage: 150 MG, BID
     Route: 048
  3. REMIRTA [Concomitant]
     Active Substance: MIRTAZAPINE
     Indication: PRODUCT USED FOR UNKNOWN INDICATION
     Dosage: UNK
     Route: 065

REACTIONS (7)
  - Tricuspid valve incompetence [Unknown]
  - Pulmonary embolism [Recovering/Resolving]
  - Embolism [Unknown]
  - Peripheral venous disease [Unknown]
  - Pain in extremity [Unknown]
  - Vasodilatation [Unknown]
  - Incorrect dose administered [Unknown]
